FAERS Safety Report 6540073-3 (Version None)
Quarter: 2010Q1

REPORT INFORMATION
  Report Type: 
  Country: None (occurrence: None)
  Receive Date: 20100115
  Receipt Date: 20100112
  Transmission Date: 20100710
  Serious: Yes (Hospitalization)
  Sender: FDA-Public Use
  Company Number: TW-WYE-H11978709

PATIENT
  Sex: Male
  Weight: 67 kg

DRUGS (7)
  1. TEMSIROLIMUS [Suspect]
     Indication: RENAL CELL CARCINOMA
     Route: 042
     Dates: start: 20081211, end: 20091027
  2. DICLOFENAC [Concomitant]
     Indication: HEADACHE
     Dosage: NOT PROVIDED
     Dates: start: 20090326
  3. BEVACIZUMAB, TEST ARTICLE IN TEMSIROLIMUS STUDY [Suspect]
     Indication: RENAL CELL CARCINOMA
     Route: 042
     Dates: start: 20081211, end: 20091027
  4. ERGOTAMINE [Concomitant]
     Indication: HEADACHE
     Dosage: NOT PROVIDED
     Dates: start: 20090910
  5. CAFFEINE [Concomitant]
     Indication: HEADACHE
     Dosage: NOT PROVIDED
     Dates: start: 20090910
  6. ZOLPIDEM [Concomitant]
     Indication: INSOMNIA
     Dosage: NOT PROVIDED
     Dates: start: 20090326
  7. BENZYDAMINE [Concomitant]
     Indication: MUCOSAL INFLAMMATION
     Dosage: NOT PROVIDED
     Route: 048
     Dates: start: 20081218

REACTIONS (1)
  - GASTRIC ULCER HAEMORRHAGE [None]
